FAERS Safety Report 19506954 (Version 2)
Quarter: 2022Q1

REPORT INFORMATION
  Report Type: Spontaneous
  Country: AU (occurrence: AU)
  Receive Date: 20210708
  Receipt Date: 20220303
  Transmission Date: 20220423
  Serious: Yes (Life-Threatening, Hospitalization)
  Sender: FDA-Public Use
  Company Number: AU-MYLANLABS-2021M1039380

PATIENT
  Age: 64 Year
  Sex: Male

DRUGS (2)
  1. AMIODARONE [Suspect]
     Active Substance: AMIODARONE
     Indication: Atrial fibrillation
     Dosage: 200 MILLIGRAM, TID
     Route: 048
  2. AMIODARONE [Suspect]
     Active Substance: AMIODARONE
     Indication: Atrial fibrillation
     Dosage: 1200 MILLIGRAM, QD
     Route: 042

REACTIONS (4)
  - Eosinophilic pneumonia [Recovered/Resolved]
  - Pulmonary oedema [Recovered/Resolved]
  - Respiratory fatigue [Recovered/Resolved]
  - Respiratory failure [Recovered/Resolved]
